FAERS Safety Report 21801540 (Version 4)
Quarter: 2023Q1

REPORT INFORMATION
  Report Type: Report from Study
  Country: FR (occurrence: FR)
  Receive Date: 20221230
  Receipt Date: 20230207
  Transmission Date: 20230418
  Serious: Yes (Hospitalization, Other)
  Sender: FDA-Public Use
  Company Number: FR-ABBVIE-4253731

PATIENT
  Age: 78 Year
  Sex: Male

DRUGS (2)
  1. CARBIDOPA\LEVODOPA [Suspect]
     Active Substance: CARBIDOPA\LEVODOPA
     Indication: Parkinson^s disease
     Route: 050
     Dates: start: 20220304, end: 20221217
  2. CARBIDOPA\LEVODOPA [Suspect]
     Active Substance: CARBIDOPA\LEVODOPA

REACTIONS (7)
  - Loss of consciousness [Unknown]
  - Motor dysfunction [Unknown]
  - Device dislocation [Unknown]
  - Aspiration [Unknown]
  - Dysphagia [Unknown]
  - General physical health deterioration [Unknown]
  - Fall [Unknown]

NARRATIVE: CASE EVENT DATE: 20221201
